FAERS Safety Report 16024133 (Version 1)
Quarter: 2019Q1

REPORT INFORMATION
  Report Type: Spontaneous
  Country: US (occurrence: US)
  Receive Date: 20190301
  Receipt Date: 20190301
  Transmission Date: 20190418
  Serious: No
  Sender: FDA-Public Use
  Company Number: US-IMPAX LABORATORIES, LLC-2018-IPXL-01925

PATIENT
  Sex: Female

DRUGS (1)
  1. EMVERM [Suspect]
     Active Substance: MEBENDAZOLE
     Indication: PRODUCT USED FOR UNKNOWN INDICATION
     Dosage: 100 MG, EVERY 12HR
     Route: 048

REACTIONS (4)
  - Irritable bowel syndrome [Unknown]
  - Nausea [Unknown]
  - Abdominal distension [Unknown]
  - Fluid retention [Unknown]
